FAERS Safety Report 17772003 (Version 2)
Quarter: 2020Q2

REPORT INFORMATION
  Report Type: Report from Study
  Country: US (occurrence: US)
  Receive Date: 20200512
  Receipt Date: 20200528
  Transmission Date: 20200714
  Serious: Yes (Hospitalization)
  Sender: FDA-Public Use
  Company Number: US-BAXTER-2020BAX009850

PATIENT
  Age: 11 Year
  Sex: Male
  Weight: 42 kg

DRUGS (19)
  1. VINCRISTINE SULFATE. [Suspect]
     Active Substance: VINCRISTINE SULFATE
     Indication: EMBRYONAL RHABDOMYOSARCOMA
     Dosage: (MAX DOSE 2MG), IV OVER 1 MINUTE OR INFUSION VIA MINIBAG ON DAYS 1, 8, AND 15 OF CYCLE 1-4
     Route: 042
     Dates: start: 20191004
  2. VINCRISTINE SULFATE. [Suspect]
     Active Substance: VINCRISTINE SULFATE
     Dosage: (MAX DOSE 2MG), IV OVER 1 MINUTE OR INFUSION VIA MINIBAG ON DAY 1 OF CYCLES 5
     Route: 042
  3. VINCRISTINE SULFATE. [Suspect]
     Active Substance: VINCRISTINE SULFATE
     Dosage: (MAX DOSE 2MG), IV OVER 1 MINUTE OR INFUSION VIA MINIBAG ON DAYS 1 AND 8 OF CYCLES 6 AND 7
     Route: 042
  4. VINCRISTINE SULFATE. [Suspect]
     Active Substance: VINCRISTINE SULFATE
     Dosage: LAST DOSE ADMINISTERED, TOTAL DOSE: 4 MG
     Route: 042
     Dates: start: 20200306, end: 20200306
  5. ZOFRAN [Concomitant]
     Active Substance: ONDANSETRON HYDROCHLORIDE
     Indication: PRODUCT USED FOR UNKNOWN INDICATION
     Route: 065
  6. DACTINOMYCIN [Suspect]
     Active Substance: DACTINOMYCIN
     Dosage: MAX DOSE 2.5MG, IV OVER 1-5 MINUTES, TOTAL DOSE: 2.4 MG, LAST DOSE ADMINISTERED
     Route: 042
     Dates: start: 20200228, end: 20200228
  7. MARINOL [Concomitant]
     Active Substance: DRONABINOL
     Indication: PRODUCT USED FOR UNKNOWN INDICATION
     Route: 065
  8. MIRALAX [Concomitant]
     Active Substance: POLYETHYLENE GLYCOL 3350
     Indication: PRODUCT USED FOR UNKNOWN INDICATION
     Route: 065
  9. VINCRISTINE SULFATE. [Suspect]
     Active Substance: VINCRISTINE SULFATE
     Dosage: MAX DOSE 2MG, OVER 1 MINUTE OR INFUSION VIA MINIBAG ON DAYS 1, 8 AND 15 OF CYCLE 8
     Route: 042
     Dates: start: 20200228
  10. TEMSIROLIMUS. [Suspect]
     Active Substance: TEMSIROLIMUS
     Indication: EMBRYONAL RHABDOMYOSARCOMA
     Dosage: (MAX DOSE 25MG), IV OVER 30-60 MINUTES ON DAYS 1, 8, AND 15 OF CYCLES 1-4
     Route: 042
     Dates: start: 20191004
  11. TEMSIROLIMUS. [Suspect]
     Active Substance: TEMSIROLIMUS
     Dosage: LAST DOSE ADMINISTERED, TOTAL DOSE: 290 MG
     Route: 042
     Dates: start: 20200306, end: 20200306
  12. BACTRIM [Concomitant]
     Active Substance: SULFAMETHOXAZOLE\TRIMETHOPRIM
     Indication: PRODUCT USED FOR UNKNOWN INDICATION
     Route: 065
  13. GABAPENTIN. [Concomitant]
     Active Substance: GABAPENTIN
     Indication: PRODUCT USED FOR UNKNOWN INDICATION
     Route: 065
  14. CYCLOPHOSPHAMIDE FOR INJECTION, USP [Suspect]
     Active Substance: CYCLOPHOSPHAMIDE
     Dosage: IV OVER 60 MINUTES, TOTAL DOSE: 1740 MG, LAST DOSE ADMINISTERED
     Route: 042
     Dates: start: 20200228, end: 20200228
  15. TEMSIROLIMUS. [Suspect]
     Active Substance: TEMSIROLIMUS
     Dosage: (MAX DOSE 25MG), IV OVER 30-60 MINUTES ON DAYS 1, 8, AND 15 OF CYCLE 8
     Route: 042
     Dates: start: 20200228
  16. CAMPTOSAR [Suspect]
     Active Substance: IRINOTECAN HYDROCHLORIDE
     Indication: EMBRYONAL RHABDOMYOSARCOMA
     Dosage: ON DAYS 1-5 OF CYCLES 2, 4, 6 AND 7
     Route: 042
  17. DACTINOMYCIN [Suspect]
     Active Substance: DACTINOMYCIN
     Indication: EMBRYONAL RHABDOMYOSARCOMA
     Dosage: (MAX DOSE 2.5MG), IV OVER 1-5 MINUTES ON DAY 1 OF CYCLES 1, 3, 5 AND 8
     Route: 042
     Dates: start: 20191004, end: 20200228
  18. MESNEX [Suspect]
     Active Substance: MESNA
     Indication: PRODUCT USED FOR UNKNOWN INDICATION
     Route: 065
  19. CYCLOPHOSPHAMIDE FOR INJECTION, USP [Suspect]
     Active Substance: CYCLOPHOSPHAMIDE
     Indication: EMBRYONAL RHABDOMYOSARCOMA
     Dosage: IV OVER 60 MINUTES ON DAY 1 OF CYCLES 1, 3, 5 AND 8
     Route: 042
     Dates: start: 20191004, end: 20200228

REACTIONS (2)
  - Pharyngeal inflammation [Recovering/Resolving]
  - Stomatitis [Recovering/Resolving]

NARRATIVE: CASE EVENT DATE: 20200309
